FAERS Safety Report 7129558-9 (Version None)
Quarter: 2010Q4

REPORT INFORMATION
  Report Type: 
  Country: None (occurrence: None)
  Receive Date: 20101130
  Receipt Date: 20101117
  Transmission Date: 20110411
  Serious: Yes (Hospitalization)
  Sender: FDA-Public Use
  Company Number: US-ELI_LILLY_AND_COMPANY-US201011005747

PATIENT
  Sex: Female

DRUGS (13)
  1. FORTEO [Suspect]
     Indication: OSTEOPOROSIS
     Dosage: 20 UG, DAILY (1/D)
  2. FORTEO [Suspect]
     Dosage: 20 UG, DAILY (1/D)
  3. EVISTA [Suspect]
     Dosage: 60 MG, UNK
  4. NEXIUM [Concomitant]
  5. ZYRTEC [Concomitant]
  6. SEREVENT [Concomitant]
  7. ASCORBIC ACID [Concomitant]
  8. CENTRUM SILVER [Concomitant]
  9. METAMUCIL-2 [Concomitant]
  10. ENABLEX                            /01760402/ [Concomitant]
  11. TUSSIONEX [Concomitant]
  12. STOOL SOFTENER [Concomitant]
  13. ALBUTEROL [Concomitant]

REACTIONS (4)
  - ASTHENIA [None]
  - DEHYDRATION [None]
  - DIARRHOEA [None]
  - GASTRIC INFECTION [None]
